FAERS Safety Report 24734243 (Version 1)
Quarter: 2024Q4

REPORT INFORMATION
  Report Type: Spontaneous
  Country: IT (occurrence: IT)
  Receive Date: 20241214
  Receipt Date: 20241214
  Transmission Date: 20250115
  Serious: Yes (Other)
  Sender: ALKEM
  Company Number: IT-ALKEM LABORATORIES LIMITED-IT-ALKEM-2024-00150

PATIENT
  Age: 13 Year
  Sex: Female
  Weight: 51.1 kg

DRUGS (7)
  1. MYCOPHENOLATE MOFETIL [Suspect]
     Active Substance: MYCOPHENOLATE MOFETIL
     Indication: C3 glomerulopathy
     Dosage: 1250 MILLIGRAM, BID (APPROXIMATELY 1250-1500 MG/M SQUARE/DAY)
     Route: 065
  2. MYCOPHENOLATE MOFETIL [Suspect]
     Active Substance: MYCOPHENOLATE MOFETIL
     Dosage: UNK (RESTARTED DOSE)
     Route: 065
  3. MYCOPHENOLATE MOFETIL [Suspect]
     Active Substance: MYCOPHENOLATE MOFETIL
     Dosage: UNK (TAPERED DOSE)
     Route: 065
  4. TACROLIMUS [Suspect]
     Active Substance: TACROLIMUS
     Indication: C3 glomerulopathy
     Dosage: 0.15 MILLIGRAM/KILOGRAM, QD
     Route: 065
  5. RAMIPRIL [Concomitant]
     Active Substance: RAMIPRIL
     Indication: C3 glomerulopathy
     Dosage: 5 MILLIGRAM, BID
     Route: 065
  6. PREDNISONE [Concomitant]
     Active Substance: PREDNISONE
     Indication: C3 glomerulopathy
     Dosage: UNK (SLOWLY TAPERED)
     Route: 065
  7. PREDNISONE [Concomitant]
     Active Substance: PREDNISONE
     Dosage: UNK, QD (REINTRODUCED DOSE)
     Route: 048

REACTIONS (2)
  - Nephropathy toxic [Unknown]
  - Drug ineffective [Unknown]
